FAERS Safety Report 17802937 (Version 1)
Quarter: 2020Q2

REPORT INFORMATION
  Report Type: Spontaneous
  Country: DE (occurrence: DE)
  Receive Date: 20200519
  Receipt Date: 20200519
  Transmission Date: 20200714
  Serious: Yes (Life-Threatening, Hospitalization, Other)
  Sender: FDA-Public Use
  Company Number: NVSC2020DE136115

PATIENT
  Sex: Female

DRUGS (1)
  1. CIPRO - 1 A PHARMA 500 MG [Suspect]
     Active Substance: CIPROFLOXACIN HYDROCHLORIDE
     Indication: PRODUCT USED FOR UNKNOWN INDICATION
     Dosage: UNK
     Route: 065
     Dates: start: 2020, end: 2020

REACTIONS (17)
  - Tremor [Not Recovered/Not Resolved]
  - Gastric disorder [Not Recovered/Not Resolved]
  - Nasal inflammation [Not Recovered/Not Resolved]
  - Micturition frequency decreased [Not Recovered/Not Resolved]
  - Muscle spasms [Not Recovered/Not Resolved]
  - Rash macular [Not Recovered/Not Resolved]
  - Head discomfort [Not Recovered/Not Resolved]
  - Abdominal distension [Not Recovered/Not Resolved]
  - Visual impairment [Not Recovered/Not Resolved]
  - Angina pectoris [Not Recovered/Not Resolved]
  - Palpitations [Not Recovered/Not Resolved]
  - Diarrhoea [Not Recovered/Not Resolved]
  - Swelling [Not Recovered/Not Resolved]
  - Cheilitis [Not Recovered/Not Resolved]
  - Chills [Not Recovered/Not Resolved]
  - Headache [Not Recovered/Not Resolved]
  - Paraesthesia [Not Recovered/Not Resolved]

NARRATIVE: CASE EVENT DATE: 2020
